FAERS Safety Report 25762376 (Version 1)
Quarter: 2025Q3

REPORT INFORMATION
  Report Type: Spontaneous
  Country: US (occurrence: US)
  Receive Date: 20250904
  Receipt Date: 20250904
  Transmission Date: 20251020
  Serious: No
  Sender: SANOFI AVENTIS
  Company Number: US-SANOFI-02640193

PATIENT
  Sex: Female
  Weight: 64.09 kg

DRUGS (22)
  1. DUPIXENT [Suspect]
     Active Substance: DUPILUMAB
     Indication: Asthma
     Dosage: 300 MG, QOW
     Route: 058
  2. GAMMAGARD [Concomitant]
     Active Substance: HUMAN IMMUNOGLOBULIN G
  3. PREGABALIN [Concomitant]
     Active Substance: PREGABALIN
  4. ALBUTEROL SULFATE [Concomitant]
     Active Substance: ALBUTEROL SULFATE
  5. VITAMIN C [Concomitant]
     Active Substance: ASCORBIC ACID
  6. VITAMIN B12 [Concomitant]
     Active Substance: CYANOCOBALAMIN
  7. SINGULAIR [Concomitant]
     Active Substance: MONTELUKAST SODIUM
  8. NURTEC ODT [Concomitant]
     Active Substance: RIMEGEPANT SULFATE
  9. THYROID [Concomitant]
     Active Substance: LEVOTHYROXINE\LIOTHYRONINE
  10. MAGNESIUM [Concomitant]
     Active Substance: MAGNESIUM
  11. NUCYNTA [Concomitant]
     Active Substance: TAPENTADOL HYDROCHLORIDE
  12. PROGESTERONE [Concomitant]
     Active Substance: PROGESTERONE
  13. PREGABALIN [Concomitant]
     Active Substance: PREGABALIN
  14. SPIRONOLACTONE [Concomitant]
     Active Substance: SPIRONOLACTONE
  15. CYCLOBENZAPRINE HYDROCHLORIDE [Concomitant]
     Active Substance: CYCLOBENZAPRINE HYDROCHLORIDE
  16. PYRIDOSTIGMINE BROMIDE [Concomitant]
     Active Substance: PYRIDOSTIGMINE BROMIDE
  17. SPIRIVA RESPIMAT [Concomitant]
     Active Substance: TIOTROPIUM BROMIDE
  18. ALBUTEROL SULFATE [Concomitant]
     Active Substance: ALBUTEROL SULFATE
  19. FLUTICASONE PROPIONATE [Concomitant]
     Active Substance: FLUTICASONE PROPIONATE
  20. SENNA S [Concomitant]
     Active Substance: DOCUSATE SODIUM\SENNOSIDES
  21. XOLAIR [Concomitant]
     Active Substance: OMALIZUMAB
  22. BOTOX [Concomitant]
     Active Substance: ONABOTULINUMTOXINA

REACTIONS (3)
  - Asthma [Unknown]
  - Accidental exposure to product [Unknown]
  - Exposure via skin contact [Unknown]
